FAERS Safety Report 23679584 (Version 1)
Quarter: 2024Q1

REPORT INFORMATION
  Report Type: Report from Study
  Country: US (occurrence: US)
  Receive Date: 20240327
  Receipt Date: 20240327
  Transmission Date: 20240410
  Serious: Yes (Hospitalization)
  Sender: FDA-Public Use
  Company Number: US-AKCEA THERAPEUTICS, INC.-2024IS002602

PATIENT

DRUGS (2)
  1. TEGSEDI [Suspect]
     Active Substance: INOTERSEN SODIUM
     Indication: Hereditary neuropathic amyloidosis
     Dosage: 284 MG, QW
     Route: 058
     Dates: start: 20210331
  2. LEXAPRO [Concomitant]
     Active Substance: ESCITALOPRAM OXALATE
     Indication: Depressed mood
     Dosage: UNK
     Route: 065

REACTIONS (16)
  - Prostatomegaly [Unknown]
  - Urinary retention [Unknown]
  - Burning sensation [Unknown]
  - Weight decreased [Unknown]
  - Bladder pain [Unknown]
  - Urinary incontinence [Unknown]
  - Hypoaesthesia [Unknown]
  - Abdominal discomfort [Unknown]
  - Body fat disorder [Unknown]
  - Weight gain poor [Unknown]
  - Urine ketone body present [Unknown]
  - Urine abnormality [Unknown]
  - Urinary casts present [Unknown]
  - Nitrite urine present [Unknown]
  - Bacterial test positive [Unknown]
  - Decreased appetite [Unknown]

NARRATIVE: CASE EVENT DATE: 20220824
